FAERS Safety Report 6519173-X (Version None)
Quarter: 2009Q4

REPORT INFORMATION
  Report Type: 
  Country: None (occurrence: None)
  Receive Date: 20091224
  Receipt Date: 20091224
  Transmission Date: 20100525
  Serious: No
  Sender: FDA-Public Use
  Company Number: None

PATIENT
  Sex: Male
  Weight: 89.8122 kg

DRUGS (2)
  1. AZITHROMYCIN [Suspect]
     Indication: PYREXIA
     Dosage: 250 1X A DAY PO
     Route: 048
     Dates: start: 20091221, end: 20091222
  2. AZITHROMYCIN [Suspect]
     Indication: RALES
     Dosage: 250 1X A DAY PO
     Route: 048
     Dates: start: 20091221, end: 20091222

REACTIONS (2)
  - PAIN [None]
  - URTICARIA [None]
